FAERS Safety Report 10048178 (Version 1)
Quarter: 2014Q1

REPORT INFORMATION
  Report Type: Spontaneous
  Country: US (occurrence: None)
  Receive Date: 20140306
  Receipt Date: 20140306
  Transmission Date: 20141002
  Serious: Yes (Hospitalization, Other)
  Sender: FDA-Public Use
  Company Number: 163-21880-13094518

PATIENT
  Age: 67 Year
  Sex: Male

DRUGS (11)
  1. REVLIMID (LENALIDOMIDE) (25 MILLIGRAM, CAPSULES) [Suspect]
     Indication: PLASMA CELL MYELOMA
     Dosage: 1 IN 1 D
     Route: 048
     Dates: start: 201005
  2. CALCIUMCITRATE WITH VITAMIN D (CALCIUM CITRATE W/COLECALCIFEROL) [Concomitant]
  3. LEVOTHYROXINE SODIUM [Concomitant]
  4. MAGNESIUM ELEMENTAL (MAGNESIUM) [Concomitant]
  5. OMEGA 3-6-9 COMPLEX (LINUM USITATISSIMUM OIL) [Concomitant]
  6. CO Q 10 (UBIDECARENONE) [Concomitant]
  7. VITAMIN C (ASCORBIC ACID) [Concomitant]
  8. OMEGA 3 (FISH OIL) [Concomitant]
  9. ZINC [Concomitant]
  10. OMEPRAZOLE [Concomitant]
  11. AVODART (DUTASTERIDE) [Concomitant]

REACTIONS (1)
  - Deep vein thrombosis [None]
